FAERS Safety Report 12755067 (Version 2)
Quarter: 2016Q3

REPORT INFORMATION
  Report Type: Spontaneous
  Country: AU (occurrence: AU)
  Receive Date: 20160916
  Receipt Date: 20160922
  Transmission Date: 20161109
  Serious: Yes (Hospitalization)
  Sender: FDA-Public Use
  Company Number: AU-PFIZER INC-2016417072

PATIENT
  Age: 14 Year
  Sex: Female

DRUGS (40)
  1. CYTARABINE. [Suspect]
     Active Substance: CYTARABINE
     Indication: B PRECURSOR TYPE ACUTE LEUKAEMIA
     Dosage: 70 MG, UNK, STAT
     Route: 037
     Dates: start: 20160322, end: 20160323
  2. DAUNORUBICIN [Suspect]
     Active Substance: DAUNORUBICIN
     Dosage: 44 MG, UNK, STAT
     Route: 042
     Dates: start: 20160406, end: 20160407
  3. VINCRISTINE [Suspect]
     Active Substance: VINCRISTINE
     Dosage: 2 MG, STAT
     Dates: start: 20160406, end: 20160407
  4. VINCRISTINE [Suspect]
     Active Substance: VINCRISTINE
     Dosage: 2 MG, STAT
     Route: 042
     Dates: start: 20160526, end: 20160527
  5. METHOTREXATE. [Suspect]
     Active Substance: METHOTREXATE
     Dosage: 15 MG, STAT
     Route: 037
     Dates: start: 20160511, end: 20160512
  6. METHOTREXATE. [Suspect]
     Active Substance: METHOTREXATE
     Dosage: 15 MG, STAT
     Route: 037
     Dates: start: 20160525, end: 20160526
  7. METHOTREXATE. [Suspect]
     Active Substance: METHOTREXATE
     Dosage: 15 MG, STAT
     Route: 037
     Dates: start: 20160601, end: 20160602
  8. MERCAPTOPURINE. [Suspect]
     Active Substance: MERCAPTOPURINE
     Indication: B PRECURSOR TYPE ACUTE LEUKAEMIA
     Dosage: 14 DF, WEEKLY X 14/7
     Route: 048
     Dates: start: 20160512, end: 20160526
  9. CYCLOPHOSPHAMIDE. [Suspect]
     Active Substance: CYCLOPHOSPHAMIDE
     Dosage: 720 MG, DAILY X 5/7 (D X 5/7)
     Route: 042
     Dates: start: 20160610, end: 20160615
  10. CYTARABINE. [Suspect]
     Active Substance: CYTARABINE
     Dosage: 121.5 MG, DAILY X 4/7
     Route: 058
     Dates: start: 20160512, end: 20160515
  11. VINCRISTINE [Suspect]
     Active Substance: VINCRISTINE
     Dosage: 2 MG, STAT
     Route: 042
     Dates: start: 20160601, end: 20160602
  12. VINCRISTINE [Suspect]
     Active Substance: VINCRISTINE
     Dosage: 2 MG, STAT
     Route: 042
     Dates: start: 20160701, end: 20160702
  13. VINCRISTINE [Suspect]
     Active Substance: VINCRISTINE
     Dosage: 2 MG, STAT
     Route: 042
     Dates: start: 20160713, end: 20160714
  14. PREDNISOLONE. [Suspect]
     Active Substance: PREDNISOLONE
     Indication: B PRECURSOR TYPE ACUTE LEUKAEMIA
     Dosage: 52.5 MG, 2X/DAY (X 28/7)
     Route: 048
     Dates: start: 20160323, end: 20160420
  15. PEG/L-ASPARAGINASE [Suspect]
     Active Substance: PEGASPARGASE
     Dosage: 4025 IU, OVER 1-2 HOURS
     Route: 042
     Dates: start: 20160526, end: 20160527
  16. METHOTREXATE. [Suspect]
     Active Substance: METHOTREXATE
     Dosage: 15 MG, STAT
     Route: 037
     Dates: start: 20160420, end: 20160421
  17. ETOPOSIDE. [Suspect]
     Active Substance: ETOPOSIDE
     Indication: B PRECURSOR TYPE ACUTE LEUKAEMIA
     Dosage: 165 MG, DAILY X 5/7 (D X 5/7)
     Route: 042
     Dates: start: 20160610, end: 20160615
  18. METHOTREXATE. [Suspect]
     Active Substance: METHOTREXATE
     Dosage: 15 MG, STAT
     Route: 037
     Dates: start: 20160518, end: 20160519
  19. MERCAPTOPURINE. [Suspect]
     Active Substance: MERCAPTOPURINE
     Dosage: 5.5 DF, WEEKLY (RESTART)
     Route: 048
     Dates: start: 20160816, end: 20160906
  20. CYCLOPHOSPHAMIDE. [Suspect]
     Active Substance: CYCLOPHOSPHAMIDE
     Indication: B PRECURSOR TYPE ACUTE LEUKAEMIA
     Dosage: 1620 MG, OVER 30 MINS
     Route: 042
     Dates: start: 20160512, end: 20160512
  21. CYTARABINE. [Suspect]
     Active Substance: CYTARABINE
     Dosage: 122 MG, DAILY X 4/7
     Route: 058
     Dates: start: 20160519, end: 20160523
  22. DAUNORUBICIN [Suspect]
     Active Substance: DAUNORUBICIN
     Indication: B PRECURSOR TYPE ACUTE LEUKAEMIA
     Dosage: 44 MG, UNK, STAT
     Route: 042
     Dates: start: 20160323, end: 20160324
  23. DAUNORUBICIN [Suspect]
     Active Substance: DAUNORUBICIN
     Dosage: 44 MG, UNK, STAT
     Route: 042
     Dates: start: 20160330, end: 20160401
  24. METHOTREXATE. [Suspect]
     Active Substance: METHOTREXATE
     Dosage: 15 MG, STAT
     Route: 037
     Dates: start: 20160713, end: 20160714
  25. PEG/L-ASPARAGINASE [Suspect]
     Active Substance: PEGASPARGASE
     Dosage: 3950 IU, OVER 2 HOURS
     Route: 042
     Dates: start: 20160624, end: 20160624
  26. MERCAPTOPURINE. [Suspect]
     Active Substance: MERCAPTOPURINE
     Dosage: 5.5 DF, WEEKLY X 56/7 (STOPPED DUE TO LOW [ILLEGIBLE])
     Route: 048
     Dates: start: 20160713, end: 20160809
  27. DAUNORUBICIN [Suspect]
     Active Substance: DAUNORUBICIN
     Dosage: 44 MG, STAT
     Route: 042
     Dates: start: 20160413, end: 20160414
  28. METHOTREXATE. [Suspect]
     Active Substance: METHOTREXATE
     Indication: B PRECURSOR TYPE ACUTE LEUKAEMIA
     Dosage: 15 MG, STAT
     Route: 037
     Dates: start: 20160330, end: 20160331
  29. METHOTREXATE. [Suspect]
     Active Substance: METHOTREXATE
     Dosage: 7.9 G, OVER 24 HOURS
     Route: 042
     Dates: start: 20160713, end: 20160714
  30. METHOTREXATE. [Suspect]
     Active Substance: METHOTREXATE
     Dosage: 7900 MG, OVER 24 HOURS
     Route: 042
     Dates: start: 20160727, end: 20160728
  31. METHOTREXATE. [Suspect]
     Active Substance: METHOTREXATE
     Dosage: 15 MG, STAT
     Route: 037
     Dates: start: 20160817, end: 20160818
  32. METHOTREXATE. [Suspect]
     Active Substance: METHOTREXATE
     Dosage: UNK
     Dates: start: 20160901
  33. VINCRISTINE [Suspect]
     Active Substance: VINCRISTINE
     Indication: B PRECURSOR TYPE ACUTE LEUKAEMIA
     Dosage: 2 MG, STAT
     Route: 042
     Dates: start: 20160323, end: 20160324
  34. VINCRISTINE [Suspect]
     Active Substance: VINCRISTINE
     Dosage: 2 MG, STAT
     Route: 042
     Dates: start: 20160330, end: 20160401
  35. VINCRISTINE [Suspect]
     Active Substance: VINCRISTINE
     Dosage: 2 MG, STAT
     Route: 042
     Dates: start: 20160413, end: 20160414
  36. VINCRISTINE [Suspect]
     Active Substance: VINCRISTINE
     Dosage: 2 MG, STAT
     Route: 042
     Dates: start: 20160623, end: 20160624
  37. VINCRISTINE [Suspect]
     Active Substance: VINCRISTINE
     Dosage: 2 MG, STAT
     Route: 042
     Dates: start: 20160727, end: 20160728
  38. VINCRISTINE [Suspect]
     Active Substance: VINCRISTINE
     Dosage: 2 MG, STAT
     Route: 042
     Dates: start: 20160817, end: 20160818
  39. METHOTREXATE. [Suspect]
     Active Substance: METHOTREXATE
     Dosage: 7700 MG, OVER 24 HOURS
     Route: 042
     Dates: start: 20160817, end: 20160818
  40. PEG/L-ASPARAGINASE [Suspect]
     Active Substance: PEGASPARGASE
     Indication: B PRECURSOR TYPE ACUTE LEUKAEMIA
     Dosage: 4350 IU, STAT
     Route: 042
     Dates: start: 20160326, end: 20160327

REACTIONS (6)
  - Alanine aminotransferase increased [Unknown]
  - Neuropathy peripheral [Unknown]
  - Disease progression [Unknown]
  - Ejection fraction decreased [Unknown]
  - B precursor type acute leukaemia [Unknown]
  - Infection [Unknown]
